FAERS Safety Report 9422786 (Version 1)
Quarter: 2013Q3

REPORT INFORMATION
  Report Type: Spontaneous
  Country: FR (occurrence: FR)
  Receive Date: 20130726
  Receipt Date: 20130726
  Transmission Date: 20140515
  Serious: Yes (Hospitalization)
  Sender: FDA-Public Use
  Company Number: FR-ASTRAZENECA-2013SE56288

PATIENT
  Age: 51 Year
  Sex: Female

DRUGS (4)
  1. INEXIUM [Suspect]
     Indication: GASTROINTESTINAL DISORDER
     Route: 048
     Dates: start: 20130306
  2. CELEBREX [Suspect]
     Indication: EPICONDYLITIS
     Route: 048
     Dates: start: 20130306
  3. TRINORDIOL [Concomitant]
  4. ALTIM [Concomitant]
     Indication: EPICONDYLITIS
     Route: 035
     Dates: start: 20130306

REACTIONS (5)
  - Epilepsy [Unknown]
  - Heart rate increased [Unknown]
  - Chest pain [Unknown]
  - Weight decreased [Unknown]
  - Palpitations [Unknown]
